FAERS Safety Report 5226863-8 (Version None)
Quarter: 2007Q1

REPORT INFORMATION
  Report Type: 
  Country: None (occurrence: None)
  Receive Date: 20070202
  Receipt Date: 20070124
  Transmission Date: 20070707
  Serious: Yes (Other)
  Sender: FDA-Public Use
  Company Number: US-JNJFOC-20070106882

PATIENT
  Sex: Female
  Weight: 83.92 kg

DRUGS (9)
  1. DURAGESIC-100 [Suspect]
     Indication: FIBROMYALGIA
     Route: 062
     Dates: start: 19980101
  2. TOPAMAX [Suspect]
     Indication: CONVULSION
     Route: 048
  3. ACIPHEX [Suspect]
     Indication: GASTROOESOPHAGEAL REFLUX DISEASE
     Route: 048
     Dates: start: 20020101
  4. ESTROGENS SOL/INJ [Concomitant]
     Indication: HORMONE REPLACEMENT THERAPY
     Route: 048
     Dates: start: 19970101
  5. MOBIC [Concomitant]
     Indication: PAIN
     Route: 048
     Dates: start: 19970101
  6. LAMICTAL [Concomitant]
     Indication: CONVULSION
     Dosage: STARTED DATE IN THE 1970'S
     Route: 048
  7. ATIVAN [Concomitant]
     Indication: FIBROMYALGIA
     Route: 003
     Dates: start: 19970101
  8. EFFEXOR XR [Concomitant]
     Indication: INSOMNIA
     Route: 048
     Dates: start: 19990101
  9. DESYREL [Concomitant]
     Indication: INSOMNIA
     Route: 048
     Dates: start: 19990101

REACTIONS (10)
  - APPLICATION SITE ERYTHEMA [None]
  - APPLICATION SITE REACTION [None]
  - COUGH [None]
  - EAR DISCOMFORT [None]
  - FATIGUE [None]
  - GASTROOESOPHAGEAL REFLUX DISEASE [None]
  - HYPOTHYROIDISM [None]
  - INSOMNIA [None]
  - PHARYNGOLARYNGEAL PAIN [None]
  - SNEEZING [None]
